FAERS Safety Report 8043094-7 (Version None)
Quarter: 2012Q1

REPORT INFORMATION
  Report Type: 
  Country: None (occurrence: None)
  Receive Date: 20120112
  Receipt Date: 20120110
  Transmission Date: 20120608
  Serious: Yes (Congenital Anomaly)
  Sender: FDA-Public Use
  Company Number: CHPA2011GB018718

PATIENT
  Weight: 3.43 kg

DRUGS (2)
  1. FERROUS SULFATE TAB [Suspect]
     Dosage: UNK, UNK
     Route: 064
     Dates: start: 20110515
  2. TYPHIM VI [Suspect]
     Indication: IMMUNISATION
     Dosage: 1 DF, ONCE/SINGLE
     Route: 064
     Dates: start: 20110415, end: 20110415

REACTIONS (2)
  - FOETAL EXPOSURE DURING PREGNANCY [None]
  - SYNDACTYLY [None]
